FAERS Safety Report 12237502 (Version 3)
Quarter: 2016Q2

REPORT INFORMATION
  Report Type: Spontaneous
  Country: US (occurrence: US)
  Receive Date: 20160405
  Receipt Date: 20160530
  Transmission Date: 20160815
  Serious: No
  Sender: FDA-Public Use
  Company Number: US-ASTRAZENECA-2016SE33248

PATIENT
  Age: 80 Year
  Sex: Female
  Weight: 71.2 kg

DRUGS (1)
  1. RHINOCORT [Suspect]
     Active Substance: BUDESONIDE
     Dosage: 2 SPRAYS DAILY
     Route: 045
     Dates: start: 20160321, end: 20160323

REACTIONS (2)
  - Hypertension [Unknown]
  - Epistaxis [Not Recovered/Not Resolved]

NARRATIVE: CASE EVENT DATE: 20160323
